FAERS Safety Report 6028964-3 (Version None)
Quarter: 2009Q1

REPORT INFORMATION
  Report Type: 
  Country: None (occurrence: None)
  Receive Date: 20090106
  Receipt Date: 20090103
  Transmission Date: 20090719
  Serious: Yes (Death, Other)
  Sender: FDA-Public Use
  Company Number: PHHY2009BR00471

PATIENT
  Age: 85 Year
  Sex: Male

DRUGS (3)
  1. EXELON [Suspect]
     Route: 062
  2. EXELON [Suspect]
     Dosage: UNK
     Route: 048
  3. RISPERIDONE [Concomitant]
     Dosage: 1 MG, TID
     Route: 048

REACTIONS (3)
  - DEMENTIA [None]
  - DEMENTIA ALZHEIMER'S TYPE [None]
  - HAEMATEMESIS [None]
